FAERS Safety Report 8870895 (Version 1)
Quarter: 2012Q4

REPORT INFORMATION
  Report Type: 
  Country: DE (occurrence: DE)
  Receive Date: 20121029
  Receipt Date: 20121029
  Transmission Date: 20130627
  Serious: Yes (Other)
  Sender: FDA-Public Use
  Company Number: PHHY2012DE096070

PATIENT
  Age: 85 Year
  Sex: Female
  Weight: 54 kg

DRUGS (3)
  1. ACLASTA [Suspect]
     Indication: OSTEOPOROSIS
     Dosage: 5 mg (1 in 1 year)
     Route: 042
  2. ACLASTA [Suspect]
     Dosage: 5 mg (1 in 1 year)
     Route: 042
  3. ACLASTA [Suspect]
     Dosage: 5 mg (1 in 1 year)
     Route: 042
     Dates: start: 201103

REACTIONS (1)
  - Osteonecrosis of jaw [Not Recovered/Not Resolved]
